FAERS Safety Report 6648528-8 (Version None)
Quarter: 2010Q1

REPORT INFORMATION
  Report Type: 
  Country: None (occurrence: None)
  Receive Date: 20100324
  Receipt Date: 20100315
  Transmission Date: 20100710
  Serious: Yes (Other)
  Sender: FDA-Public Use
  Company Number: US-SANOFI-AVENTIS-2010SA014854

PATIENT
  Age: 76 Year
  Sex: Male

DRUGS (2)
  1. MULTAQ [Suspect]
     Route: 048
     Dates: start: 20100116, end: 20100309
  2. PACERONE [Concomitant]
     Indication: ATRIAL FIBRILLATION
     Dates: start: 20091222, end: 20100116

REACTIONS (1)
  - OPTIC NEUROPATHY [None]
